FAERS Safety Report 4327348-3 (Version None)
Quarter: 2004Q1

REPORT INFORMATION
  Report Type: 
  Country: None (occurrence: None)
  Receive Date: 20040319
  Receipt Date: 20031210
  Transmission Date: 20041129
  Serious: No
  Sender: FDA-Public Use
  Company Number: US-JNJFOC-20031202881

PATIENT
  Age: 32 Year
  Sex: Female
  Weight: 61.2356 kg

DRUGS (9)
  1. ORTHO EVRA [Suspect]
     Indication: CONTRACEPTION
     Dosage: 1 DOSE(S), 3 IN 4 WEEK, TRANSDERMAL
     Route: 062
     Dates: start: 20031116
  2. MS CONTIN [Concomitant]
  3. PERCOCET [Concomitant]
  4. HYDROCODONE (HYDROCODONE) [Concomitant]
  5. MOTRIN [Concomitant]
  6. VIOXX [Concomitant]
  7. ALLEGRA [Concomitant]
  8. VITAMIN E [Concomitant]
  9. VITAMIN B (VITAMIN B) [Concomitant]

REACTIONS (1)
  - VAGINAL DISCHARGE [None]
